FAERS Safety Report 21646224 (Version 1)
Quarter: 2022Q4

REPORT INFORMATION
  Report Type: Spontaneous
  Country: ES (occurrence: ES)
  Receive Date: 20221126
  Receipt Date: 20221126
  Transmission Date: 20230112
  Serious: Yes (Life-Threatening, Hospitalization)
  Sender: FDA-Public Use
  Company Number: None

PATIENT
  Age: 60 Year
  Sex: Female

DRUGS (4)
  1. CAPECITABINE [Interacting]
     Active Substance: CAPECITABINE
     Indication: Colorectal cancer
     Dosage: 2 EVERY 12H
     Dates: start: 20211214, end: 20211230
  2. BRIVUDINE [Interacting]
     Active Substance: BRIVUDINE
     Indication: Herpes zoster
     Dates: start: 20211224, end: 20211225
  3. Deprax [Concomitant]
     Indication: Insomnia
     Dosage: STRENGTH: 100 MG, 30 TABLETS, 1 EVERY 24H
     Dates: start: 20210615
  4. REPAGLINIDE [Concomitant]
     Active Substance: REPAGLINIDE
     Indication: Diabetes mellitus
     Dosage: 1 MG TABLETS EFG, 90 TABLETS,2 EVERY 8 HOURS
     Dates: start: 20201230

REACTIONS (6)
  - Pharyngeal inflammation [Recovered/Resolved]
  - Agranulocytosis [Recovered/Resolved]
  - Vulvovaginal inflammation [Recovered/Resolved]
  - Contraindicated product prescribed [Unknown]
  - Oesophagitis [Recovered/Resolved]
  - Drug interaction [Unknown]

NARRATIVE: CASE EVENT DATE: 20211224
